FAERS Safety Report 7515928-3 (Version None)
Quarter: 2011Q2

REPORT INFORMATION
  Report Type: 
  Country: None (occurrence: None)
  Receive Date: 20110520
  Receipt Date: 20110509
  Transmission Date: 20111010
  Serious: Yes (Hospitalization)
  Sender: FDA-Public Use
  Company Number: UTC-006076

PATIENT
  Age: 33 Year
  Sex: Female

DRUGS (2)
  1. TRACLEER [Concomitant]
  2. REMODULIN [Suspect]
     Dosage: 179.28 UG/KG (0.1245 UG/KG,1 IN 1 MIN), SUBCUTANEOUS
     Route: 058
     Dates: start: 20100701

REACTIONS (3)
  - PNEUMONIA [None]
  - PULMONARY CONGESTION [None]
  - PLEURAL EFFUSION [None]
